FAERS Safety Report 4551156-1 (Version None)
Quarter: 2005Q1

REPORT INFORMATION
  Report Type: 
  Country: None (occurrence: None)
  Receive Date: 20050111
  Receipt Date: 20050111
  Transmission Date: 20050727
  Serious: Yes (Hospitalization)
  Sender: FDA-Public Use
  Company Number: None

PATIENT
  Age: 54 Year
  Sex: Male
  Weight: 83 kg

DRUGS (3)
  1. NEVIRAPINE [Suspect]
     Indication: HIV INFECTION
     Dosage: 400MG,200MGBID,ORAL
     Route: 048
     Dates: start: 20041115, end: 20041217
  2. ABACAVIR [Concomitant]
  3. TENOFOVIR [Concomitant]

REACTIONS (2)
  - RASH [None]
  - STOMATITIS [None]
